FAERS Safety Report 23492551 (Version 1)
Quarter: 2024Q1

REPORT INFORMATION
  Report Type: Spontaneous
  Country: US (occurrence: US)
  Receive Date: 20240207
  Receipt Date: 20240207
  Transmission Date: 20240410
  Serious: Yes (Other)
  Sender: FDA-Public Use
  Company Number: US-SANOFI-01925539

PATIENT
  Sex: Male

DRUGS (4)
  1. PLAVIX [Suspect]
     Active Substance: CLOPIDOGREL BISULFATE
     Indication: Prophylaxis
     Dosage: UNK
     Dates: start: 2005
  2. ASPIRIN [Concomitant]
     Active Substance: ASPIRIN
     Dosage: UNK
  3. TICLID [Concomitant]
     Active Substance: TICLOPIDINE HYDROCHLORIDE
     Dosage: UNK
  4. PERSANTINE [Concomitant]
     Active Substance: DIPYRIDAMOLE
     Dosage: UNK

REACTIONS (4)
  - Gastric antral vascular ectasia [Unknown]
  - Arrhythmia [Unknown]
  - Supraventricular extrasystoles [Unknown]
  - Renal disorder [Unknown]
